FAERS Safety Report 9463762 (Version 1)
Quarter: 2013Q3

REPORT INFORMATION
  Report Type: Spontaneous
  Country: AU (occurrence: AU)
  Receive Date: 20130819
  Receipt Date: 20130819
  Transmission Date: 20140515
  Serious: Yes (Other)
  Sender: FDA-Public Use
  Company Number: AU-GENZYME-THYM-1004000

PATIENT
  Sex: 0

DRUGS (5)
  1. THYMOGLOBULIN [Suspect]
     Indication: BONE MARROW CONDITIONING REGIMEN
     Dosage: UNK
     Route: 065
  2. CYCLOPHOSPHAMIDE [Suspect]
     Indication: BONE MARROW CONDITIONING REGIMEN
     Dosage: UNK
     Route: 065
  3. PREDNISOLONE [Suspect]
     Indication: CHRONIC GRAFT VERSUS HOST DISEASE
     Dosage: UNK (BONE MARROW CONDITIONING)
     Route: 048
  4. PREDNISOLONE [Suspect]
     Indication: BONE MARROW CONDITIONING REGIMEN
     Dosage: UNK CHRONIC GRAFT VERSUS HOST DISEASE)
     Route: 048
  5. RADIOTHERAPY [Concomitant]
     Indication: PRODUCT USED FOR UNKNOWN INDICATION
     Dosage: 1329 CGY, UNK (TOTAL BODY IRRADIATION)
     Route: 065

REACTIONS (1)
  - Osteonecrosis [Unknown]
